FAERS Safety Report 7265286-7 (Version None)
Quarter: 2011Q1

REPORT INFORMATION
  Report Type: 
  Country: None (occurrence: None)
  Receive Date: 20110131
  Receipt Date: 20110126
  Transmission Date: 20110831
  Serious: Yes (Hospitalization)
  Sender: FDA-Public Use
  Company Number: GB-PFIZER INC-2007048853

PATIENT
  Age: 62 Year
  Sex: Male
  Weight: 86.9 kg

DRUGS (10)
  1. SUNITINIB MALATE [Suspect]
     Indication: RENAL CELL CARCINOMA
     Dosage: 50 MG, 1X/DAY
     Route: 048
     Dates: start: 20060804
  2. GABAPENTIN [Concomitant]
     Indication: BONE PAIN
     Route: 048
     Dates: start: 20020101
  3. CELECOXIB [Concomitant]
     Indication: BONE PAIN
     Route: 048
     Dates: start: 20020101
  4. ACETAMINOPHEN [Concomitant]
     Indication: BONE PAIN
     Route: 048
     Dates: start: 20020101
  5. MORPHINE SULFATE [Concomitant]
     Indication: BONE PAIN
     Route: 048
     Dates: start: 20020101
  6. LANSOPRAZOLE [Concomitant]
     Indication: PROPHYLAXIS
     Route: 048
     Dates: start: 20020101
  7. ENALAPRIL MALEATE [Concomitant]
     Indication: HYPERTENSION
     Route: 048
     Dates: start: 20020101
  8. METOCLOPRAMIDE [Concomitant]
     Route: 048
     Dates: start: 20020101
  9. TEMAZEPAM [Concomitant]
     Indication: SEDATION
     Route: 048
     Dates: start: 20020101
  10. VENLAFAXINE [Concomitant]
     Indication: DEPRESSION
     Dosage: UNK
     Route: 048
     Dates: start: 20020101

REACTIONS (1)
  - CONFUSIONAL STATE [None]
